FAERS Safety Report 9026496 (Version 1)
Quarter: 2013Q1

REPORT INFORMATION
  Report Type: Spontaneous
  Country: GB (occurrence: None)
  Receive Date: 20130107
  Receipt Date: 20130107
  Transmission Date: 20140127
  Serious: Yes (Hospitalization)
  Sender: FDA-Public Use
  Company Number: 2012-01927

PATIENT
  Age: 82 Year
  Sex: Female
  Weight: 41.5 kg

DRUGS (8)
  1. QUETIAPINE [Suspect]
     Indication: PRODUCT USED FOR UNKNOWN INDICATION
     Route: 048
     Dates: start: 20110613, end: 20121217
  2. CALCICHEW D3 [Concomitant]
  3. CO-CODAMOL [Concomitant]
  4. ENOXAPARIN [Concomitant]
  5. FOLIC ACID [Concomitant]
  6. LACTULOSE [Concomitant]
  7. MICONAZOLE [Concomitant]
  8. SENNA [Concomitant]

REACTIONS (2)
  - Dehydration [None]
  - Hypernatraemia [None]
